FAERS Safety Report 14794251 (Version 1)
Quarter: 2018Q2

REPORT INFORMATION
  Report Type: Spontaneous
  Country: BR (occurrence: BR)
  Receive Date: 20180423
  Receipt Date: 20180423
  Transmission Date: 20180711
  Serious: Yes (Other)
  Sender: FDA-Public Use
  Company Number: PHHY2018BR070388

PATIENT
  Sex: Female
  Weight: 52 kg

DRUGS (1)
  1. FORASEQ [Suspect]
     Active Substance: BUDESONIDE\FORMOTEROL FUMARATE
     Indication: ASTHMA
     Dosage: 1 DF, QD (IIN THE MORNING)
     Route: 048

REACTIONS (3)
  - Renal disorder [Unknown]
  - Diabetes mellitus [Unknown]
  - Cough [Not Recovered/Not Resolved]
